FAERS Safety Report 9324901 (Version 1)
Quarter: 2013Q2

REPORT INFORMATION
  Report Type: Spontaneous
  Country: DE (occurrence: DE)
  Receive Date: 20130603
  Receipt Date: 20130603
  Transmission Date: 20140414
  Serious: Yes (Congenital Anomaly, Other)
  Sender: FDA-Public Use
  Company Number: DE-TEVA-407028GER

PATIENT
  Age: 0 Year
  Sex: Male

DRUGS (7)
  1. LAMOTRIGIN [Suspect]
     Route: 064
  2. KEPPRA [Suspect]
     Route: 064
  3. SEROQUEL [Suspect]
     Route: 064
  4. RIVOTRIL [Suspect]
     Route: 064
  5. EUTHYROX [Concomitant]
     Route: 064
  6. STANGYL [Concomitant]
     Route: 064
  7. HEROIN [Concomitant]
     Route: 064

REACTIONS (4)
  - Neonatal respiratory distress syndrome [Recovered/Resolved]
  - Dysmorphism [Unknown]
  - Convulsion [Recovered/Resolved]
  - Withdrawal syndrome [Recovered/Resolved]
